FAERS Safety Report 12506951 (Version 1)
Quarter: 2016Q2

REPORT INFORMATION
  Report Type: Spontaneous
  Country: CH (occurrence: CH)
  Receive Date: 20160629
  Receipt Date: 20160629
  Transmission Date: 20160815
  Serious: Yes (Other)
  Sender: FDA-Public Use
  Company Number: CH-ASTRAZENECA-2016SE67596

PATIENT
  Age: 10910 Day
  Sex: Female

DRUGS (8)
  1. MOTILIUM [Suspect]
     Active Substance: DOMPERIDONE
     Indication: MIGRAINE
     Route: 048
  2. ZOLPIDEM [Suspect]
     Active Substance: ZOLPIDEM\ZOLPIDEM TARTRATE
     Dosage: 10 MG, DAILY, GENERIC
     Route: 048
  3. ZYPREXA [Suspect]
     Active Substance: OLANZAPINE
     Route: 048
  4. TEMESTA [Suspect]
     Active Substance: LORAZEPAM
     Route: 065
  5. ZOLOFT [Suspect]
     Active Substance: SERTRALINE HYDROCHLORIDE
     Indication: DEPRESSION
     Route: 048
  6. IMIGRAN [Suspect]
     Active Substance: SUMATRIPTAN SUCCINATE
     Indication: MIGRAINE
     Route: 048
  7. XANAX [Suspect]
     Active Substance: ALPRAZOLAM
     Route: 048
  8. NEXIUM [Suspect]
     Active Substance: ESOMEPRAZOLE MAGNESIUM
     Route: 048

REACTIONS (2)
  - Exposure during pregnancy [Recovered/Resolved]
  - Gestational diabetes [Unknown]

NARRATIVE: CASE EVENT DATE: 20141204
